FAERS Safety Report 8547607-8 (Version None)
Quarter: 2012Q3

REPORT INFORMATION
  Report Type: 
  Country: None (occurrence: None)
  Receive Date: 20120727
  Receipt Date: 20120319
  Transmission Date: 20120928
  Serious: Yes (Other)
  Sender: FDA-Public Use
  Company Number: US-ASTRAZENECA-2012SE18514

PATIENT
  Age: 48 Year
  Sex: Male
  Weight: 97.5 kg

DRUGS (5)
  1. SEROQUEL [Suspect]
     Route: 048
  2. PRISTIQ [Suspect]
     Dates: start: 20120201
  3. WELLBUTRIN [Suspect]
  4. LEXAPRO [Suspect]
  5. SEROQUEL [Suspect]
     Indication: DEPRESSION
     Route: 048

REACTIONS (5)
  - MOOD SWINGS [None]
  - DRUG INEFFECTIVE [None]
  - PARANOIA [None]
  - INSOMNIA [None]
  - SUICIDAL IDEATION [None]
